FAERS Safety Report 8507343-0 (Version None)
Quarter: 2012Q3

REPORT INFORMATION
  Report Type: 
  Country: None (occurrence: None)
  Receive Date: 20120712
  Receipt Date: 20120216
  Transmission Date: 20120928
  Serious: Yes (Hospitalization)
  Sender: FDA-Public Use
  Company Number: GB-BAXTER-2012BH005485

PATIENT
  Age: 84 Year
  Sex: Female

DRUGS (4)
  1. EXTRANEAL [Suspect]
     Route: 033
     Dates: start: 20080629
  2. PHYSIONEAL 40 GLUCOSE 1.36% W/V / 13.6 MG/ML CLEAR-FLEX, SOLUTION FOR [Suspect]
     Route: 033
     Dates: start: 20080629
  3. NUTRINEAL [Suspect]
     Route: 033
     Dates: start: 20080629
  4. INSULIN [Concomitant]

REACTIONS (1)
  - RECTAL PROLAPSE [None]
